FAERS Safety Report 21256581 (Version 1)
Quarter: 2022Q3

REPORT INFORMATION
  Report Type: Spontaneous
  Country: GB (occurrence: GB)
  Receive Date: 20220826
  Receipt Date: 20220826
  Transmission Date: 20221026
  Serious: Yes (Death, Other)
  Sender: FDA-Public Use
  Company Number: GB-BAXTER-2022BAX013432

PATIENT
  Sex: Female
  Weight: 4.7 kg

DRUGS (10)
  1. AMIODARONE [Suspect]
     Active Substance: AMIODARONE
     Indication: Ventricular fibrillation
     Dosage: UNK
     Route: 065
     Dates: start: 20200711, end: 20200711
  2. ADENOSINE [Suspect]
     Active Substance: ADENOSINE
     Indication: Supraventricular tachycardia
     Dosage: 940 MICROGRAM (200 MCG/KG)
     Route: 065
     Dates: start: 20200711, end: 20200711
  3. ADENOSINE [Suspect]
     Active Substance: ADENOSINE
     Dosage: 700 MICROGRAM/KILOGRAM
     Route: 065
     Dates: start: 20200711, end: 20200711
  4. ADENOSINE [Suspect]
     Active Substance: ADENOSINE
     Dosage: 1400 MICROGRAM (300 MCG/KG)
     Route: 065
     Dates: start: 20200711, end: 20200711
  5. AMOXICILLIN [Suspect]
     Active Substance: AMOXICILLIN
     Indication: Sepsis
     Dosage: UNK (141 MG (10 ML SYRINGE))
     Route: 065
     Dates: start: 20200711, end: 20200711
  6. CEFOTAXIME [Suspect]
     Active Substance: CEFOTAXIME SODIUM
     Indication: Sepsis
     Dosage: UNK (235 MG (10 ML SYRINGE))
     Route: 065
     Dates: start: 20200711, end: 20200711
  7. DEXTROSE [Suspect]
     Active Substance: DEXTROSE
     Indication: Product used for unknown indication
     Dosage: UNK
     Route: 040
     Dates: start: 20200711, end: 20200711
  8. DEXTROSE [Suspect]
     Active Substance: DEXTROSE
     Dosage: UNK (10 %)
     Route: 040
     Dates: start: 20200711, end: 20200711
  9. SODIUM CHLORIDE [Suspect]
     Active Substance: SODIUM CHLORIDE
     Indication: Product used for unknown indication
     Dosage: UNK (10MLS SALINE FLUSH, THIS WAS THEN FOLLOWED BY 20MLS/KG 0.9% SODIUM CHLORIDE GIVEN AS FLUID BOLU
     Route: 040
     Dates: start: 20200711, end: 20200711
  10. SODIUM BICARBONATE [Suspect]
     Active Substance: SODIUM BICARBONATE
     Indication: Product used for unknown indication
     Dosage: UNK
     Route: 065
     Dates: start: 20200711, end: 20200711

REACTIONS (3)
  - Cardiac arrest [Fatal]
  - Overdose [Fatal]
  - Product administration error [Unknown]

NARRATIVE: CASE EVENT DATE: 20200711
